FAERS Safety Report 7488156-8 (Version None)
Quarter: 2011Q2

REPORT INFORMATION
  Report Type: 
  Country: None (occurrence: None)
  Receive Date: 20110518
  Receipt Date: 20110511
  Transmission Date: 20111010
  Serious: Yes (Hospitalization)
  Sender: FDA-Public Use
  Company Number: HU-ROCHE-776661

PATIENT
  Sex: Female

DRUGS (2)
  1. PACLITAXEL [Suspect]
     Indication: BREAST CANCER
     Dosage: LAST DOSE PRIOR TO SAE ON 21 DECEMBER 2009, DAY 1, 8 AND 15 EVERY FOUR WEEKS
     Route: 042
     Dates: start: 20090622, end: 20100104
  2. BEVACIZUMAB [Suspect]
     Indication: BREAST CANCER
     Dosage: LAST DOSE PRIOR TO SAE ON 07 MARCH 2011.ON DAY 1 AND 15 EVERY WEEK.
     Route: 042
     Dates: start: 20090622

REACTIONS (1)
  - OSTEONECROSIS OF JAW [None]
